FAERS Safety Report 4304214-0 (Version None)
Quarter: 2004Q1

REPORT INFORMATION
  Report Type: 
  Country: None (occurrence: None)
  Receive Date: 20040225
  Receipt Date: 20020812
  Transmission Date: 20041129
  Serious: Yes (Life-Threatening, Hospitalization, Disabling)
  Sender: FDA-Public Use
  Company Number: WAES 0208AUS00078

PATIENT
  Age: 71 Year
  Sex: Female

DRUGS (2)
  1. ZOCOR [Suspect]
     Indication: HYPERCHOLESTEROLAEMIA
     Route: 048
     Dates: start: 20000101, end: 20020301
  2. ZOCOR [Suspect]
     Route: 048
     Dates: start: 20020301, end: 20020607

REACTIONS (6)
  - ASTHENIA [None]
  - INFLUENZA LIKE ILLNESS [None]
  - MYALGIA [None]
  - MYOPATHY [None]
  - RENAL FAILURE ACUTE [None]
  - RHABDOMYOLYSIS [None]
